FAERS Safety Report 5800799-3 (Version None)
Quarter: 2008Q3

REPORT INFORMATION
  Report Type: 
  Country: None (occurrence: None)
  Receive Date: 20080703
  Receipt Date: 20080623
  Transmission Date: 20090109
  Serious: Yes (Hospitalization)
  Sender: FDA-Public Use
  Company Number: IT-MERCK-0806ITA00032

PATIENT

DRUGS (2)
  1. CANCIDAS [Suspect]
     Indication: FUNGAL INFECTION
     Route: 051
  2. VORICONAZOLE [Concomitant]
     Indication: FUNGAL INFECTION
     Route: 065

REACTIONS (1)
  - DRUG EFFECT DECREASED [None]
